FAERS Safety Report 9888011 (Version 1)
Quarter: 2014Q1

REPORT INFORMATION
  Report Type: Spontaneous
  Country: SG (occurrence: None)
  Receive Date: 20140207
  Receipt Date: 20140207
  Transmission Date: 20141002
  Serious: Yes (Other)
  Sender: FDA-Public Use
  Company Number: SYM-2014-15739

PATIENT
  Age: 53 Year
  Sex: Male

DRUGS (4)
  1. METRONIDAZOLE (METRONIDAZOLE) (METRONIDAZOLE) [Suspect]
     Indication: PRODUCT USED FOR UNKNOWN INDICATION
  2. CURAM (AMOXI-CLAVULANICO) (AMOXICILLIN, CLAVULANIC ACID) [Concomitant]
  3. MEFENAMIC ACID (MEFENAMIC ACID) (MEFENAMIC ACID) [Concomitant]
  4. NAPROXEN (NAPROXEN) (NAPROXEN) [Concomitant]

REACTIONS (2)
  - Nausea [None]
  - Vomiting [None]
